FAERS Safety Report 5140028-X (Version None)
Quarter: 2006Q4

REPORT INFORMATION
  Report Type: 
  Country: None (occurrence: None)
  Receive Date: 20061025
  Receipt Date: 20061012
  Transmission Date: 20070319
  Serious: Yes (Other)
  Sender: FDA-Public Use
  Company Number: 2006128211

PATIENT
  Sex: Male

DRUGS (4)
  1. ZOLOFT [Suspect]
     Indication: INSOMNIA
     Dosage: 150 MG (150 MG,1 IN 1 D), ORAL
     Route: 048
  2. ZOLOFT [Suspect]
     Indication: LIBIDO INCREASED
     Dosage: 150 MG (150 MG,1 IN 1 D), ORAL
     Route: 048
  3. ARICEPT [Suspect]
     Indication: DEMENTIA
     Dosage: 5 MG (5MG, 1 IN 1 D)
  4. ALL OTHER THERAPEUTIC PRODUCTS [Concomitant]

REACTIONS (3)
  - ASTHENIA [None]
  - DEMENTIA [None]
  - RAPID EYE MOVEMENTS SLEEP ABNORMAL [None]
